FAERS Safety Report 8707257 (Version 2)
Quarter: 2013Q4

REPORT INFORMATION
  Report Type: Spontaneous
  Country: US (occurrence: US)
  Receive Date: 20120803
  Receipt Date: 20131101
  Transmission Date: 20140711
  Serious: No
  Sender: FDA-Public Use
  Company Number: US-009507513-1205USA00183

PATIENT
  Sex: Female

DRUGS (4)
  1. ZOCOR [Suspect]
     Route: 048
  2. LIPITOR [Suspect]
     Dosage: 20 MG, QD
     Route: 048
  3. PROZAC [Concomitant]
  4. MYFORTIC [Concomitant]

REACTIONS (2)
  - Blood cholesterol increased [Unknown]
  - Headache [Unknown]
